FAERS Safety Report 6189341-8 (Version None)
Quarter: 2009Q2

REPORT INFORMATION
  Report Type: 
  Country: None (occurrence: None)
  Receive Date: 20090512
  Receipt Date: 20090423
  Transmission Date: 20091009
  Serious: Yes (Death, Life-Threatening, Hospitalization, Other)
  Sender: FDA-Public Use
  Company Number: ADE# 09-140DPR

PATIENT
  Age: 73 Year
  Sex: Male

DRUGS (1)
  1. DIGOXIN [Suspect]
     Indication: CARDIAC DISORDER

REACTIONS (17)
  - BONE MARROW DISORDER [None]
  - BRAIN HYPOXIA [None]
  - CARDIAC DISORDER [None]
  - CORONARY ARTERY BYPASS [None]
  - DEMENTIA [None]
  - DIZZINESS [None]
  - DYSSTASIA [None]
  - FALL [None]
  - GAIT DISTURBANCE [None]
  - HEART RATE INCREASED [None]
  - HEART VALVE OPERATION [None]
  - HYPERTENSION [None]
  - PLATELET COUNT DECREASED [None]
  - POST PROCEDURAL COMPLICATION [None]
  - PULSE ABNORMAL [None]
  - WALKING AID USER [None]
  - WEIGHT DECREASED [None]
